FAERS Safety Report 8381481-8 (Version None)
Quarter: 2012Q2

REPORT INFORMATION
  Report Type: 
  Country: None (occurrence: None)
  Receive Date: 20120523
  Receipt Date: 20120514
  Transmission Date: 20120825
  Serious: Yes (Hospitalization)
  Sender: FDA-Public Use
  Company Number: US-BAXTER-2012BAX005647

PATIENT
  Sex: Female

DRUGS (3)
  1. DIANEAL LOW CALCIUM W/ DEXTROSE 1.5% [Suspect]
     Indication: PERITONEAL DIALYSIS
     Dates: start: 20100708
  2. DIANEAL LOW CALCIUM W/ DEXTROSE 1.5% [Suspect]
     Dates: start: 20100708
  3. DIANEAL LOW CALCIUM W/ DEXTROSE 1.5% [Suspect]
     Dates: start: 20100708

REACTIONS (2)
  - CELLULITIS [None]
  - BREAST INJURY [None]
